FAERS Safety Report 10426366 (Version 1)
Quarter: 2014Q3

REPORT INFORMATION
  Report Type: Spontaneous
  Country: US (occurrence: None)
  Receive Date: 20140902
  Receipt Date: 20140902
  Transmission Date: 20150326
  Serious: Yes (Death, Hospitalization)
  Sender: FDA-Public Use
  Company Number: None

PATIENT
  Age: 71 Year
  Sex: Female
  Weight: 52.6 kg

DRUGS (2)
  1. TAXOTERE [Suspect]
     Active Substance: DOCETAXEL
     Dates: end: 20140804
  2. CYCLOPHOSPHAMIDE. [Suspect]
     Active Substance: CYCLOPHOSPHAMIDE
     Dates: end: 20140804

REACTIONS (9)
  - Vomiting [None]
  - Intestinal perforation [None]
  - Acidosis [None]
  - Necrosis ischaemic [None]
  - Syncope [None]
  - Gastrointestinal toxicity [None]
  - Abdominal pain [None]
  - Shock [None]
  - Candida infection [None]

NARRATIVE: CASE EVENT DATE: 20140818
